FAERS Safety Report 12310337 (Version 1)
Quarter: 2016Q2

REPORT INFORMATION
  Report Type: Spontaneous
  Country: US (occurrence: US)
  Receive Date: 20160427
  Receipt Date: 20160427
  Transmission Date: 20160815
  Serious: Yes (Hospitalization)
  Sender: FDA-Public Use
  Company Number: US-NOVOPROD-489021

PATIENT
  Age: 60 Year
  Sex: Female
  Weight: 74.38 kg

DRUGS (1)
  1. NOVOLOG MIX 70/30 [Suspect]
     Active Substance: INSULIN ASPART
     Indication: TYPE 2 DIABETES MELLITUS
     Dosage: SLIDING SCALE
     Route: 058
     Dates: start: 2015, end: 20160322

REACTIONS (6)
  - Drug ineffective [Recovered/Resolved]
  - Staphylococcal infection [Recovered/Resolved]
  - Blood glucose increased [Recovered/Resolved]
  - Blood magnesium decreased [Recovered/Resolved]
  - Blood potassium decreased [Recovered/Resolved]
  - Blood electrolytes increased [Recovered/Resolved]

NARRATIVE: CASE EVENT DATE: 201602
